FAERS Safety Report 13113770 (Version 2)
Quarter: 2017Q1

REPORT INFORMATION
  Report Type: Spontaneous
  Country: DK (occurrence: DK)
  Receive Date: 20170113
  Receipt Date: 20170322
  Transmission Date: 20170428
  Serious: Yes (Death, Hospitalization)
  Sender: FDA-Public Use
  Company Number: DK-SA-2017SA005418

PATIENT
  Age: 71 Year
  Sex: Male

DRUGS (10)
  1. TESTOGEL [Concomitant]
     Active Substance: TESTOSTERONE
     Route: 065
  2. VIBEDEN [Concomitant]
     Dosage: 1 DOSAGE FORM EVERY 3 MONTHS
     Route: 065
  3. MEDROL [Concomitant]
     Active Substance: METHYLPREDNISOLONE
     Indication: PULMONARY FIBROSIS
     Route: 065
  4. METFORMIN [Concomitant]
     Active Substance: METFORMIN HYDROCHLORIDE
     Dosage: PAUSED FOR AN ENDOCRINOLOGY CAUSE
     Route: 065
  5. CRESTOR [Concomitant]
     Active Substance: ROSUVASTATIN CALCIUM
     Route: 065
  6. RAMIPRIL. [Concomitant]
     Active Substance: RAMIPRIL
     Dosage: PAUSED FOR AN ENDOCRINOLOGY CAUSE
     Route: 065
  7. ARAVA [Suspect]
     Active Substance: LEFLUNOMIDE
     Indication: RHEUMATOID ARTHRITIS
     Route: 048
     Dates: start: 20160119
  8. METOPROLOL SUCCINATE. [Concomitant]
     Active Substance: METOPROLOL SUCCINATE
     Route: 065
  9. MAGNYL [Concomitant]
     Active Substance: ASPIRIN
     Route: 065
  10. VOLTAREN [Concomitant]
     Active Substance: DICLOFENAC SODIUM
     Dosage: THIN LAYER 4 TIMES A DAY
     Route: 065

REACTIONS (1)
  - Staphylococcal sepsis [Fatal]

NARRATIVE: CASE EVENT DATE: 20160123
